FAERS Safety Report 19079582 (Version 1)
Quarter: 2021Q1

REPORT INFORMATION
  Report Type: Other
  Country: IT (occurrence: IT)
  Receive Date: 20210331
  Receipt Date: 20210331
  Transmission Date: 20210420
  Serious: Yes (Hospitalization, Other)
  Sender: FDA-Public Use
  Company Number: IT-VALIDUS PHARMACEUTICALS LLC-IT-2021VAL000920

PATIENT
  Age: 80 Year
  Sex: Female

DRUGS (5)
  1. DILTIAZEM HYDROCHLORIDE. [Suspect]
     Active Substance: DILTIAZEM HYDROCHLORIDE
     Indication: PRODUCT ADMINISTRATION ERROR
     Dosage: 120 MG, TOTAL
     Route: 048
     Dates: start: 20180901, end: 20180901
  2. FUROSEMIDE. [Suspect]
     Active Substance: FUROSEMIDE
     Indication: PRODUCT ADMINISTRATION ERROR
     Dosage: 75 MG, TOTAL
     Route: 048
     Dates: start: 20180901, end: 20180901
  3. IRBESARTAN. [Suspect]
     Active Substance: IRBESARTAN
     Indication: PRODUCT ADMINISTRATION ERROR
     Dosage: 300 MG, TOTAL
     Route: 048
     Dates: start: 20180901, end: 20180901
  4. EDOXABAN [Suspect]
     Active Substance: EDOXABAN TOSYLATE
     Indication: PRODUCT ADMINISTRATION ERROR
     Dosage: 1 DF, TOTAL
     Route: 048
     Dates: start: 20180901, end: 20180901
  5. BISOPROLOL FUMARATE. [Suspect]
     Active Substance: BISOPROLOL FUMARATE
     Indication: PRODUCT ADMINISTRATION ERROR
     Dosage: 5 MG, TOTAL
     Route: 048
     Dates: start: 20180901, end: 20180901

REACTIONS (2)
  - Medication error [Unknown]
  - Bradycardia [Recovering/Resolving]

NARRATIVE: CASE EVENT DATE: 20180901
